FAERS Safety Report 5091168-5 (Version None)
Quarter: 2006Q3

REPORT INFORMATION
  Report Type: 
  Country: None (occurrence: None)
  Receive Date: 20060829
  Receipt Date: 20060811
  Transmission Date: 20061208
  Serious: Yes (Other)
  Sender: FDA-Public Use
  Company Number: PHNU2006DE02777

PATIENT
  Age: 85 Year
  Sex: Female

DRUGS (5)
  1. DESFERAL [Suspect]
     Indication: BLOOD ALUMINIUM INCREASED
  2. SEROQUEL [Concomitant]
     Dosage: 200 MG/DAY
     Route: 065
  3. OXAZEPAM [Concomitant]
     Dosage: 10 MG/DAY
     Route: 065
  4. RENAGEL [Concomitant]
     Route: 065
     Dates: start: 20060626
  5. AXURA [Concomitant]

REACTIONS (2)
  - GAMMA-GLUTAMYLTRANSFERASE INCREASED [None]
  - TRANSAMINASES INCREASED [None]
